FAERS Safety Report 8787250 (Version 1)
Quarter: 2012Q4

REPORT INFORMATION
  Report Type: Report from Study
  Country: US (occurrence: US)
  Receive Date: 20120914
  Receipt Date: 20120914
  Transmission Date: 20130627
  Serious: No
  Sender: FDA-Public Use
  Company Number: US-VERTEX PHARMACEUTICAL INC.-AE-2012-010895

PATIENT
  Sex: Female

DRUGS (8)
  1. INCIVEK [Suspect]
     Indication: HEPATITIS C
     Route: 048
     Dates: start: 2012
  2. RIBASPHERE [Concomitant]
     Indication: HEPATITIS C
     Dates: start: 2012
  3. PEGASYS [Concomitant]
     Indication: HEPATITIS C
     Route: 058
     Dates: start: 2012
  4. PREDNISONE [Concomitant]
  5. EXFORGE [Concomitant]
  6. GABAPENTIN [Concomitant]
  7. SIMVASTATIN [Concomitant]
  8. METOPROLOL SUCCINATE ER [Concomitant]

REACTIONS (1)
  - Malaise [Unknown]
